FAERS Safety Report 7558796-6 (Version None)
Quarter: 2011Q2

REPORT INFORMATION
  Report Type: 
  Country: None (occurrence: None)
  Receive Date: 20110621
  Receipt Date: 20081114
  Transmission Date: 20111010
  Serious: No
  Sender: FDA-Public Use
  Company Number: 2008BI030897

PATIENT
  Sex: Female

DRUGS (3)
  1. TYLENOL-500 [Concomitant]
     Indication: PREMEDICATION
  2. TYSABRI [Suspect]
     Indication: MULTIPLE SCLEROSIS
     Route: 042
     Dates: start: 20080818
  3. AVONEX [Concomitant]
     Route: 030
     Dates: start: 19971001

REACTIONS (5)
  - MOBILITY DECREASED [None]
  - FATIGUE [None]
  - BALANCE DISORDER [None]
  - PARAESTHESIA [None]
  - ASTHENIA [None]
